FAERS Safety Report 7454055-0 (Version None)
Quarter: 2011Q2

REPORT INFORMATION
  Report Type: 
  Country: None (occurrence: None)
  Receive Date: 20110502
  Receipt Date: 20110427
  Transmission Date: 20111010
  Serious: Yes (Life-Threatening, Hospitalization, Disabling)
  Sender: FDA-Public Use
  Company Number: US-MERCK-1104USA02257

PATIENT
  Age: 86 Year
  Sex: Female

DRUGS (9)
  1. PRIMAXIN [Suspect]
     Indication: ARTERIOVENOUS GRAFT SITE INFECTION
     Route: 042
     Dates: start: 20110323, end: 20110415
  2. PRIMAXIN [Suspect]
     Indication: ENDOCARDITIS
     Route: 042
     Dates: start: 20110323, end: 20110415
  3. COUMADIN [Concomitant]
     Route: 065
  4. PAXIL [Concomitant]
     Route: 065
  5. PRIMAXIN [Suspect]
     Route: 042
     Dates: start: 20110415
  6. DOCUSATE SODIUM [Concomitant]
     Route: 065
  7. DAPTOMYCIN [Concomitant]
     Route: 065
  8. FERROUS SULFATE [Concomitant]
     Route: 065
  9. PRIMAXIN [Suspect]
     Route: 042
     Dates: start: 20110415

REACTIONS (2)
  - HEPATIC FAILURE [None]
  - INTERNATIONAL NORMALISED RATIO INCREASED [None]
